FAERS Safety Report 10347470 (Version 3)
Quarter: 2020Q3

REPORT INFORMATION
  Report Type: Report from Study
  Country: IE (occurrence: IE)
  Receive Date: 20140729
  Receipt Date: 20200803
  Transmission Date: 20201102
  Serious: Yes (Other)
  Sender: FDA-Public Use
  Company Number: IE-SHIRE-IE201400546

PATIENT

DRUGS (7)
  1. ELAPRASE [Suspect]
     Active Substance: IDURSULFASE
     Indication: MUCOPOLYSACCHARIDOSIS II
     Dosage: 12 MG, 1X/WEEK
     Route: 041
     Dates: start: 20111027
  2. XYZAL [Concomitant]
     Active Substance: LEVOCETIRIZINE DIHYDROCHLORIDE
     Indication: PRODUCT USED FOR UNKNOWN INDICATION
     Dosage: UNK, UNKNOWN (1 HOUR PRIOR TO INFUSION)
     Route: 048
  3. AMETOP [Concomitant]
     Indication: PRODUCT USED FOR UNKNOWN INDICATION
  4. EMLA [Concomitant]
     Active Substance: LIDOCAINE\PRILOCAINE
     Indication: PRODUCT USED FOR UNKNOWN INDICATION
  5. NEUROFEN [Concomitant]
     Active Substance: IBUPROFEN
     Indication: PRODUCT USED FOR UNKNOWN INDICATION
     Dosage: UNK, UNKNOWN( ONE HOUR PRIOR TO INFUSION)
     Route: 048
  6. PENICILLIN [Concomitant]
     Active Substance: PENICILLIN
     Indication: PRODUCT USED FOR UNKNOWN INDICATION
  7. CRYOGESIC [Concomitant]
     Indication: PRODUCT USED FOR UNKNOWN INDICATION
     Dosage: UNK, UNKNOWN (PORTACATH SITE PRIOR TO ACCESS)
     Route: 061

REACTIONS (4)
  - Joint stiffness [Unknown]
  - Mixed deafness [Not Recovered/Not Resolved]
  - Otitis media [Unknown]
  - Hypoacusis [Unknown]

NARRATIVE: CASE EVENT DATE: 20140212
